FAERS Safety Report 7368543-9 (Version None)
Quarter: 2011Q1

REPORT INFORMATION
  Report Type: 
  Country: None (occurrence: None)
  Receive Date: 20110311
  Receipt Date: 20110224
  Transmission Date: 20110831
  Serious: Yes (Other)
  Sender: FDA-Public Use
  Company Number: 2011SP008809

PATIENT
  Age: 15 Year
  Sex: Male
  Weight: 63.5036 kg

DRUGS (1)
  1. AERIUS DUAL ACTION 12 HOUR (DESLORATADINE W/PSEUDOEPHEDRINE) [Suspect]
     Indication: PRODUCT USED FOR UNKNOWN INDICATION
     Dosage: ONCE; PO
     Route: 048

REACTIONS (7)
  - MIGRAINE [None]
  - NAUSEA [None]
  - ANGER [None]
  - RESTLESSNESS [None]
  - CRYING [None]
  - PSYCHOMOTOR HYPERACTIVITY [None]
  - MOOD SWINGS [None]
